FAERS Safety Report 15689272 (Version 1)
Quarter: 2018Q4

REPORT INFORMATION
  Report Type: Spontaneous
  Country: BE (occurrence: BE)
  Receive Date: 20181205
  Receipt Date: 20181205
  Transmission Date: 20190205
  Serious: Yes (Other)
  Sender: FDA-Public Use
  Company Number: PHHY2018BE171625

PATIENT
  Age: 7 Year
  Sex: Male

DRUGS (1)
  1. RILATINE [Suspect]
     Active Substance: METHYLPHENIDATE HYDROCHLORIDE
     Indication: PRODUCT USED FOR UNKNOWN INDICATION
     Dosage: UNK (1 CO IPV. 1/2 CO EN VANMIDDAG NOG 1/2)
     Route: 048

REACTIONS (5)
  - Vasodilatation [Unknown]
  - Tachycardia [Unknown]
  - Dyskinesia [Unknown]
  - Headache [Unknown]
  - Rash [Unknown]
